FAERS Safety Report 4595490-8 (Version None)
Quarter: 2005Q1

REPORT INFORMATION
  Report Type: 
  Country: None (occurrence: None)
  Receive Date: 20050302
  Receipt Date: 20050221
  Transmission Date: 20050727
  Serious: Yes (Death, Life-Threatening, Hospitalization)
  Sender: FDA-Public Use
  Company Number: JP-JNJFOC-20050101243

PATIENT
  Sex: Male

DRUGS (14)
  1. INFLIXIMAB [Suspect]
     Route: 042
  2. INFLIXIMAB [Suspect]
     Route: 042
  3. INFLIXIMAB [Suspect]
     Route: 042
  4. INFLIXIMAB [Suspect]
     Indication: RHEUMATOID ARTHRITIS
     Route: 042
  5. RHEUMATREX [Suspect]
     Indication: RHEUMATOID ARTHRITIS
     Route: 049
  6. PREDONINE [Suspect]
     Route: 049
  7. PREDONINE [Suspect]
     Route: 049
  8. PREDONINE [Suspect]
     Indication: ADRENOCORTICAL STEROID THERAPY
     Route: 049
  9. PSL [Concomitant]
     Route: 049
  10. RIMATIL [Concomitant]
     Indication: RHEUMATOID ARTHRITIS
     Route: 049
  11. LOXONINE [Concomitant]
     Indication: ANTIINFLAMMATORY THERAPY
     Route: 049
  12. FOLIAMIN [Concomitant]
     Route: 049
  13. BONALON [Concomitant]
     Route: 049
  14. HUMACART-N [Concomitant]

REACTIONS (2)
  - DISSEMINATED TUBERCULOSIS [None]
  - MULTI-ORGAN FAILURE [None]
